FAERS Safety Report 6625031 (Version 9)
Quarter: 2014Q4

REPORT INFORMATION
  Report Type: Spontaneous
  Country: JP (occurrence: None)
  Receive Date: 20080411
  Receipt Date: 20141128
  Transmission Date: 20150529
  Serious: Yes (Hospitalization, Disabling, Other)
  Sender: FDA-Public Use
  Company Number: 2008JP001731

PATIENT
  Age: 26 Year
  Sex: Female
  Weight: 55 kg

DRUGS (13)
  1. PROGRAF [Suspect]
     Active Substance: TACROLIMUS\TACROLIMUS ANHYDROUS
     Indication: LUPUS NEPHRITIS
     Dosage: 3 MG, ORAL, 3 MG, ORAL, 1 MG, ORAL, 2 MG, ORAL, 2.5 MG, ORAL
     Route: 048
     Dates: start: 20070720, end: 20070729
  2. ALFAROL [Concomitant]
     Active Substance: ALFACALCIDOL
  3. ACTONEL [Concomitant]
     Active Substance: RISEDRONATE SODIUM
  4. SLOW-K [Concomitant]
     Active Substance: POTASSIUM CHLORIDE
  5. EDIROL (ELDECALCITOL) [Concomitant]
  6. PRAVASTATIN [Concomitant]
     Active Substance: PRAVASTATIN\PRAVASTATIN SODIUM
  7. PERSANTINE [Concomitant]
     Active Substance: DIPYRIDAMOLE
  8. PREDNISOLONE. [Suspect]
     Active Substance: PREDNISOLONE
     Indication: LUPUS NEPHRITIS
     Dosage: SEE IMAGE
     Route: 048
     Dates: end: 20070817
  9. LAC B (LACTOBACILLUS BIFIDUS, LYOPHILIZED) [Concomitant]
     Active Substance: BIFIDOBACTERIUM SPP.
  10. KEISHIBUKURYOUGAN (HERBAL EXTRACT NOS) [Concomitant]
  11. MYSER  (DIFLUPREDNATE) [Concomitant]
     Active Substance: DIFLUPREDNATE
  12. PERSANTINE [Concomitant]
     Active Substance: DIPYRIDAMOLE
  13. TOKISYAKUYAKUSAN (HERBAL EXTRACT NOS) [Concomitant]

REACTIONS (11)
  - Cystitis [None]
  - Osteonecrosis [None]
  - Bronchitis [None]
  - Gastroenteritis [None]
  - Arthralgia [None]
  - Diarrhoea [None]
  - Nasopharyngitis [None]
  - Urinary tract infection [None]
  - Upper respiratory tract inflammation [None]
  - Rhinitis [None]
  - Eczema [None]

NARRATIVE: CASE EVENT DATE: 20070723
